FAERS Safety Report 9973878 (Version 2)
Quarter: 2014Q1

REPORT INFORMATION
  Report Type: Spontaneous
  Country: US (occurrence: US)
  Receive Date: 20140306
  Receipt Date: 20140306
  Transmission Date: 20141002
  Serious: No
  Sender: FDA-Public Use
  Company Number: US-MYLANLABS-2014S1002010

PATIENT
  Age: 49 Year
  Sex: Male

DRUGS (2)
  1. RABEPRAZOLE SODIUM DELAYED-RELEASE TABLETS [Suspect]
     Indication: GASTROOESOPHAGEAL REFLUX DISEASE
     Dates: start: 20131112, end: 20131125
  2. RABEPRAZOLE SODIUM DELAYED-RELEASE TABLETS [Suspect]
     Indication: IRRITABLE BOWEL SYNDROME
     Dates: start: 20131112, end: 20131125

REACTIONS (3)
  - Drug ineffective [Recovered/Resolved]
  - Gastrooesophageal reflux disease [Recovered/Resolved]
  - Irritable bowel syndrome [Recovered/Resolved]
